FAERS Safety Report 22047668 (Version 2)
Quarter: 2023Q2

REPORT INFORMATION
  Report Type: Spontaneous
  Country: US (occurrence: None)
  Receive Date: 20230301
  Receipt Date: 20230424
  Transmission Date: 20230721
  Serious: No
  Sender: FDA-Public Use
  Company Number: 2023A037409

PATIENT
  Age: 910 Month
  Sex: Male
  Weight: 79.4 kg

DRUGS (1)
  1. BREZTRI [Suspect]
     Active Substance: BUDESONIDE\FORMOTEROL\GLYCOPYRROLATE
     Indication: Chronic obstructive pulmonary disease
     Dosage: 160 UG, 2 INHALATIONS TWICE DAILY
     Route: 055

REACTIONS (6)
  - Dyspnoea [Unknown]
  - Incorrect dose administered by device [Recovered/Resolved]
  - Product dose omission issue [Recovered/Resolved]
  - Intentional device misuse [Unknown]
  - Wrong technique in device usage process [Unknown]
  - Device delivery system issue [Unknown]

NARRATIVE: CASE EVENT DATE: 20230201
